FAERS Safety Report 7204626-1 (Version None)
Quarter: 2010Q4

REPORT INFORMATION
  Report Type: 
  Country: None (occurrence: None)
  Receive Date: 20101230
  Receipt Date: 20101221
  Transmission Date: 20110411
  Serious: Yes (Death, Other)
  Sender: FDA-Public Use
  Company Number: US-JNJFOC-20101208618

PATIENT

DRUGS (5)
  1. ACETAMINOPHEN [Suspect]
  2. ACETAMINOPHEN [Suspect]
     Indication: ILL-DEFINED DISORDER
  3. VITAMIN B6 [Suspect]
     Indication: ILL-DEFINED DISORDER
  4. DOXYLAMINE [Suspect]
     Indication: ILL-DEFINED DISORDER
  5. PROPOXYPHENE HYDROCHLORIDE [Suspect]
     Indication: ILL-DEFINED DISORDER

REACTIONS (5)
  - DEATH [None]
  - GENITOURINARY TRACT NEOPLASM [None]
  - JOINT DISLOCATION [None]
  - MATERNAL DRUGS AFFECTING FOETUS [None]
  - PREMATURE BABY [None]
